FAERS Safety Report 16335205 (Version 2)
Quarter: 2024Q4

REPORT INFORMATION
  Report Type: Spontaneous
  Country: DE (occurrence: DE)
  Receive Date: 20190521
  Receipt Date: 20241113
  Transmission Date: 20250114
  Serious: Yes (Death, Hospitalization, Other)
  Sender: AUROBINDO
  Company Number: DE-AUROBINDO-AUR-APL-2019-028084

PATIENT
  Age: 44 Year
  Sex: Female

DRUGS (7)
  1. BOSENTAN [Suspect]
     Active Substance: BOSENTAN
     Indication: Systemic scleroderma
     Dosage: UNK
     Route: 048
  2. SILDENAFIL [Suspect]
     Active Substance: SILDENAFIL
     Indication: Systemic scleroderma
     Dosage: UNK
     Route: 065
  3. OPSUMIT [Suspect]
     Active Substance: MACITENTAN
     Indication: Systemic scleroderma
     Dosage: UNK
     Route: 048
  4. CYCLOPHOSPHAMIDE [Suspect]
     Active Substance: CYCLOPHOSPHAMIDE
     Indication: Systemic scleroderma
     Dosage: UNK
     Route: 065
  5. ALPROSTADIL ALFADEX [Suspect]
     Active Substance: ALPROSTADIL ALFADEX
     Indication: Systemic scleroderma
     Dosage: UNK
     Route: 065
  6. ILOPROST TROMETHAMINE [Suspect]
     Active Substance: ILOPROST TROMETHAMINE
     Indication: Systemic scleroderma
     Dosage: UNK
     Route: 065
  7. CYCLOSPORINE [Suspect]
     Active Substance: CYCLOSPORINE
     Indication: Systemic scleroderma
     Dosage: UNK
     Route: 065

REACTIONS (15)
  - Multiple organ dysfunction syndrome [Fatal]
  - Sepsis [Fatal]
  - Right ventricular dilatation [Fatal]
  - Myocardial fibrosis [Fatal]
  - Systemic scleroderma [Fatal]
  - Heart transplant [Fatal]
  - Cardiac dysfunction [Fatal]
  - Pneumonia [Fatal]
  - Respiratory failure [Fatal]
  - Left ventricular dysfunction [Fatal]
  - Myocarditis [Fatal]
  - Disease progression [Fatal]
  - Galectin-3 increased [Fatal]
  - Ventricular hypokinesia [Fatal]
  - Right ventricular failure [Fatal]
